FAERS Safety Report 7729235-7 (Version None)
Quarter: 2011Q3

REPORT INFORMATION
  Report Type: 
  Country: None (occurrence: None)
  Receive Date: 20110825
  Receipt Date: 20110819
  Transmission Date: 20111222
  Serious: Yes (Hospitalization)
  Sender: FDA-Public Use
  Company Number: 2011029557

PATIENT
  Age: 42 Year
  Sex: Female
  Weight: 81.6475 kg

DRUGS (11)
  1. IBUPROFEN [Concomitant]
  2. TOPAMAX [Concomitant]
  3. FLEXERIL [Concomitant]
  4. NEXIUM [Concomitant]
  5. HIZENTRA (IMMUNOGLOBULIN HUMAN NORMAL) [Suspect]
     Indication: HYPOGAMMAGLOBULINAEMIA
     Dosage: 1 (8 G 1X/WEEK, 4 GM 20 ML VIAL; 40 ML IN 2-3 SITES SUBCUTANEOUS)
     Route: 058
     Dates: start: 20110316
  6. DICYCLOMINE [Concomitant]
  7. WELLBUTRIN XL [Concomitant]
  8. DYAZIDE [Concomitant]
  9. PLAQUENIL [Concomitant]
  10. HYDROCODONE BT IBUPROFEN (HYDROCODONE W/IBUPROFEN) [Concomitant]
  11. XANAX [Concomitant]

REACTIONS (4)
  - VOMITING [None]
  - NAUSEA [None]
  - NECK PAIN [None]
  - NEPHROLITHIASIS [None]
